FAERS Safety Report 18997978 (Version 1)
Quarter: 2021Q1

REPORT INFORMATION
  Report Type: Spontaneous
  Country: US (occurrence: US)
  Receive Date: 20210311
  Receipt Date: 20210311
  Transmission Date: 20210420
  Serious: Yes (Other)
  Sender: FDA-Public Use
  Company Number: US-NEUROCRINE BIOSCIENCES INC.-2021NBI00943

PATIENT
  Age: 6 Decade
  Sex: Male

DRUGS (5)
  1. INGREZZA [Suspect]
     Active Substance: VALBENAZINE
     Route: 048
     Dates: start: 20210218
  2. INGREZZA [Suspect]
     Active Substance: VALBENAZINE
     Indication: TARDIVE DYSKINESIA
     Route: 048
     Dates: start: 202010, end: 202011
  3. INGREZZA [Suspect]
     Active Substance: VALBENAZINE
     Route: 048
     Dates: start: 202011, end: 20210217
  4. INGREZZA [Suspect]
     Active Substance: VALBENAZINE
     Route: 048
     Dates: start: 20210218
  5. BENZTROPINE. [Concomitant]
     Active Substance: BENZTROPINE
     Dosage: TAPERED DOWN OVER 6 MONTHS AND STOPPED TAKING IT IN DECEMBER 2020
     Dates: end: 202012

REACTIONS (3)
  - Accidental overdose [Unknown]
  - Catatonia [Unknown]
  - Neuroleptic malignant syndrome [Unknown]

NARRATIVE: CASE EVENT DATE: 20210218
